FAERS Safety Report 9720377 (Version 2)
Quarter: 2013Q4

REPORT INFORMATION
  Report Type: Spontaneous
  Country: FR (occurrence: FR)
  Receive Date: 20131129
  Receipt Date: 20131223
  Transmission Date: 20140711
  Serious: Yes (Other)
  Sender: FDA-Public Use
  Company Number: FR-009507513-1311FRA009708

PATIENT
  Age: 13 Year
  Sex: Male

DRUGS (3)
  1. STROMECTOL [Suspect]
     Indication: ACARODERMATITIS
     Dosage: 1 DF, ONCE
     Route: 048
     Dates: start: 20131109, end: 20131109
  2. STROMECTOL [Suspect]
     Dosage: 1 DF, ONCE
     Route: 048
  3. SPREGAL [Suspect]
     Dosage: 1 DF, ONCE
     Route: 003
     Dates: start: 20131109, end: 20131109

REACTIONS (6)
  - Crying [Recovered/Resolved]
  - Monoparesis [Recovered/Resolved]
  - Chills [Recovered/Resolved]
  - Chills [Recovered/Resolved]
  - Tremor [Recovered/Resolved]
  - Dizziness [Recovered/Resolved]
